FAERS Safety Report 5235514-8 (Version None)
Quarter: 2007Q1

REPORT INFORMATION
  Report Type: 
  Country: None (occurrence: None)
  Receive Date: 20070207
  Receipt Date: 20070207
  Transmission Date: 20070707
  Serious: No
  Sender: FDA-Public Use
  Company Number: None

PATIENT
  Age: 51 Year
  Sex: Male
  Weight: 101.6057 kg

DRUGS (1)
  1. DULOXETINE [Suspect]
     Indication: DEPRESSION
     Dosage: 60 MG  DAILY  PO
     Route: 048
     Dates: start: 20060929, end: 20060929

REACTIONS (8)
  - COORDINATION ABNORMAL [None]
  - DIZZINESS [None]
  - ERYTHEMA [None]
  - FEELING HOT AND COLD [None]
  - JAUNDICE [None]
  - NAUSEA [None]
  - NERVOUSNESS [None]
  - SKIN DISCOLOURATION [None]
